FAERS Safety Report 8660762 (Version 3)
Quarter: 2013Q4

REPORT INFORMATION
  Report Type: Spontaneous
  Country: US (occurrence: US)
  Receive Date: 20120711
  Receipt Date: 20131212
  Transmission Date: 20140711
  Serious: Yes (Hospitalization, Other)
  Sender: FDA-Public Use
  Company Number: US-009507513-1207USA001650

PATIENT
  Sex: Female

DRUGS (3)
  1. FOSAMAX [Suspect]
     Indication: OSTEOPOROSIS
     Dosage: 70 MG, QW
     Route: 048
     Dates: start: 2001, end: 2005
  2. FOSAMAX [Suspect]
     Indication: OSTEOPENIA
  3. SYNTHROID [Concomitant]
     Indication: HYPOTHYROIDISM
     Dosage: UNK
     Dates: start: 1992

REACTIONS (14)
  - Femur fracture [Unknown]
  - Intramedullary rod insertion [Unknown]
  - Fall [Unknown]
  - Hyponatraemia [Unknown]
  - Hypernatraemia [Unknown]
  - Confusional state [Unknown]
  - Urinary retention [Unknown]
  - Spinal osteoarthritis [Unknown]
  - Hypertension [Unknown]
  - Transient ischaemic attack [Unknown]
  - Hyperlipidaemia [Unknown]
  - Knee arthroplasty [Unknown]
  - Drug hypersensitivity [Unknown]
  - Drug hypersensitivity [Unknown]
